FAERS Safety Report 6199042-8 (Version None)
Quarter: 2009Q2

REPORT INFORMATION
  Report Type: 
  Country: None (occurrence: None)
  Receive Date: 20090521
  Receipt Date: 20090521
  Transmission Date: 20091009
  Serious: Yes (Hospitalization)
  Sender: FDA-Public Use
  Company Number: None

PATIENT
  Age: 69 Year
  Sex: Female
  Weight: 61.2356 kg

DRUGS (1)
  1. BACTRIM DS [Suspect]
     Indication: URINARY TRACT INFECTION
     Dosage: 800/160 BID PO
     Route: 048
     Dates: start: 20090417, end: 20090420

REACTIONS (2)
  - HEPATITIS [None]
  - PANCREATITIS [None]
